FAERS Safety Report 4943507-0 (Version None)
Quarter: 2006Q1

REPORT INFORMATION
  Report Type: 
  Country: None (occurrence: None)
  Receive Date: 20060309
  Receipt Date: 20060223
  Transmission Date: 20060701
  Serious: Yes (Hospitalization)
  Sender: FDA-Public Use
  Company Number: SUS1-2006-00227

PATIENT
  Age: 72 Year
  Sex: Female
  Weight: 68.9 kg

DRUGS (9)
  1. AGRYLIN [Suspect]
     Indication: MYELOPROLIFERATIVE DISORDER
     Dosage: 0.5 MG, 3X/DAY:TID
     Dates: start: 20060211, end: 20060219
  2. DIGOXIN [Concomitant]
  3. METOPROLOL (METOPROLOL) [Concomitant]
  4. ZOCOR [Concomitant]
  5. ASPIRIN /00002701)/(ACETYLSALICYLIC ACID) [Concomitant]
  6. CLONIDINE [Concomitant]
  7. IMMUNOGLOBULIN (IMMUNOGLOBULIN) [Concomitant]
  8. DECADRON /00016001/(DEXAMETHASONE) [Concomitant]
  9. LOVENOX /00889602/(HEPARIN-FRACTION, SODIUM SALT) [Concomitant]

REACTIONS (3)
  - ELECTROCARDIOGRAM QT PROLONGED [None]
  - TORSADE DE POINTES [None]
  - VENTRICULAR TACHYCARDIA [None]
